FAERS Safety Report 9427466 (Version 2)
Quarter: 2013Q3

REPORT INFORMATION
  Report Type: Spontaneous
  Country: US (occurrence: US)
  Receive Date: 20130730
  Receipt Date: 20130904
  Transmission Date: 20140515
  Serious: Yes (Other)
  Sender: FDA-Public Use
  Company Number: US-BAYER-2013-090968

PATIENT
  Age: 70 Year
  Sex: Male
  Weight: 90.25 kg

DRUGS (1)
  1. NEXAVAR [Suspect]
     Indication: HEPATIC CANCER METASTATIC
     Dosage: 200 MG Q 3RD DAY
     Route: 048
     Dates: start: 20130521, end: 20130716

REACTIONS (1)
  - Hepatic cancer metastatic [Not Recovered/Not Resolved]
